FAERS Safety Report 10189783 (Version 1)
Quarter: 2014Q2

REPORT INFORMATION
  Report Type: Spontaneous
  Country: US (occurrence: US)
  Receive Date: 20140522
  Receipt Date: 20140522
  Transmission Date: 20141212
  Serious: Yes (Other)
  Sender: FDA-Public Use
  Company Number: US-SANOFI-AVENTIS-2013SA049046

PATIENT
  Age: 73 Year
  Sex: Male

DRUGS (5)
  1. LANTUS SOLOSTAR [Suspect]
     Indication: TYPE 2 DIABETES MELLITUS
     Dosage: PRODUCT STARTED TWO MONTHS AGO DOSE:62 UNIT(S)
     Route: 058
  2. SOLOSTAR [Suspect]
     Indication: TYPE 2 DIABETES MELLITUS
  3. GLIPIZIDE [Suspect]
  4. GLUCOPHAGE [Concomitant]
  5. JANUVIA [Concomitant]

REACTIONS (3)
  - Hypoglycaemia [Recovered/Resolved]
  - Sleep disorder [Recovered/Resolved]
  - Blood glucose increased [Unknown]
